FAERS Safety Report 6183998-3 (Version None)
Quarter: 2009Q2

REPORT INFORMATION
  Report Type: 
  Country: None (occurrence: None)
  Receive Date: 20090508
  Receipt Date: 20090407
  Transmission Date: 20091009
  Serious: No
  Sender: FDA-Public Use
  Company Number: US-BAYER-200917804NA

PATIENT
  Sex: Female

DRUGS (1)
  1. AVELOX [Suspect]
     Indication: PNEUMONIA PRIMARY ATYPICAL

REACTIONS (3)
  - DIZZINESS [None]
  - FEELING HOT [None]
  - HYPERHIDROSIS [None]
